FAERS Safety Report 8984141 (Version 1)
Quarter: 2012Q4

REPORT INFORMATION
  Report Type: Spontaneous
  Country: FR (occurrence: None)
  Receive Date: 20121212
  Receipt Date: 20121212
  Transmission Date: 20130627
  Serious: Yes (Hospitalization, Other)
  Sender: FDA-Public Use
  Company Number: ENT 2012-0177

PATIENT
  Age: 81 Year
  Sex: Female

DRUGS (1)
  1. COMTAN [Suspect]
     Dosage: 4 dosage form (1 dosage form, 4 in 1 d) oral
     Route: 048
     Dates: start: 201209

REACTIONS (7)
  - Dyskinesia [None]
  - Decreased activity [None]
  - Fall [None]
  - Overdose [None]
  - General physical health deterioration [None]
  - Blood pressure increased [None]
  - Disease recurrence [None]
